FAERS Safety Report 14033251 (Version 1)
Quarter: 2017Q4

REPORT INFORMATION
  Report Type: Spontaneous
  Country: US (occurrence: US)
  Receive Date: 20171002
  Receipt Date: 20171002
  Transmission Date: 20180321
  Serious: Yes (Life-Threatening)
  Sender: FDA-Public Use
  Company Number: None

PATIENT
  Age: 19 Year
  Sex: Female
  Weight: 48.6 kg

DRUGS (2)
  1. INFUVITE [Suspect]
     Active Substance: VITAMINS
     Indication: DEHYDRATION
     Dosage: ?          OTHER FREQUENCY:WEELY;?
     Route: 041
     Dates: start: 20170930, end: 20170930
  2. NORMAL SALINE [Suspect]
     Active Substance: SODIUM CHLORIDE
     Indication: DEHYDRATION
     Dosage: ?          OTHER FREQUENCY:WEEKLY;?
     Route: 041
     Dates: start: 20170930, end: 20170930

REACTIONS (5)
  - Dyspnoea [None]
  - Erythema [None]
  - Anaphylactic reaction [None]
  - Flushing [None]
  - Chest discomfort [None]

NARRATIVE: CASE EVENT DATE: 20170930
